FAERS Safety Report 7105600-6 (Version None)
Quarter: 2010Q4

REPORT INFORMATION
  Report Type: 
  Country: None (occurrence: None)
  Receive Date: 20101116
  Receipt Date: 20101103
  Transmission Date: 20110411
  Serious: Yes (Other)
  Sender: FDA-Public Use
  Company Number: US-ROCHE-719241

PATIENT
  Sex: Male
  Weight: 70.3 kg

DRUGS (1)
  1. ACCUTANE [Suspect]
     Indication: ACNE
     Route: 048
     Dates: start: 20020201, end: 20020717

REACTIONS (13)
  - ANAEMIA [None]
  - ANAL FISSURE [None]
  - ANAL FISTULA [None]
  - ARTHRALGIA [None]
  - BLOOD CHOLESTEROL INCREASED [None]
  - COLITIS [None]
  - CROHN'S DISEASE [None]
  - DRY SKIN [None]
  - EMOTIONAL DISTRESS [None]
  - GASTROINTESTINAL INJURY [None]
  - HAEMORRHOIDS [None]
  - IRRITABLE BOWEL SYNDROME [None]
  - TENDONITIS [None]
